FAERS Safety Report 6683610-0 (Version None)
Quarter: 2010Q2

REPORT INFORMATION
  Report Type: 
  Country: None (occurrence: None)
  Receive Date: 20100412
  Receipt Date: 20090811
  Transmission Date: 20101027
  Serious: No
  Sender: FDA-Public Use
  Company Number: 2009-00550

PATIENT
  Age: 55 Year
  Sex: Female
  Weight: 81.1939 kg

DRUGS (3)
  1. ZICAM COLD REMEDY GEL SWABS [Suspect]
  2. ZICAM COLD REMEDY NASAL GEL [Suspect]
  3. LEVOTHROID [Concomitant]

REACTIONS (1)
  - ANOSMIA [None]
